FAERS Safety Report 13939453 (Version 1)
Quarter: 2017Q3

REPORT INFORMATION
  Report Type: Spontaneous
  Country: US (occurrence: US)
  Receive Date: 20170906
  Receipt Date: 20170906
  Transmission Date: 20171127
  Serious: No
  Sender: FDA-Public Use
  Company Number: US-PFIZER INC-2017380133

PATIENT
  Age: 42 Year
  Sex: Female

DRUGS (1)
  1. XELJANZ XR [Suspect]
     Active Substance: TOFACITINIB CITRATE
     Dosage: 11 MG, DAILY

REACTIONS (9)
  - Diarrhoea [Unknown]
  - Fibromyalgia [Unknown]
  - Alopecia [Unknown]
  - Fatigue [Unknown]
  - Synovitis [Unknown]
  - Back pain [Unknown]
  - Musculoskeletal stiffness [Unknown]
  - Insomnia [Unknown]
  - Joint swelling [Unknown]
